FAERS Safety Report 11388792 (Version 3)
Quarter: 2015Q4

REPORT INFORMATION
  Report Type: Spontaneous
  Country: US (occurrence: US)
  Receive Date: 20150817
  Receipt Date: 20151106
  Transmission Date: 20160304
  Serious: No
  Sender: FDA-Public Use
  Company Number: US-009507513-1508USA002267

PATIENT
  Age: 24 Year
  Sex: Female
  Weight: 59.41 kg

DRUGS (1)
  1. NEXPLANON [Suspect]
     Active Substance: ETONOGESTREL
     Indication: CONTRACEPTION
     Dosage: UNK
     Route: 059
     Dates: start: 20150522, end: 20150713

REACTIONS (10)
  - Haemorrhage [Unknown]
  - Device difficult to use [Recovered/Resolved]
  - Encapsulation reaction [Recovered/Resolved]
  - Affective disorder [Recovered/Resolved]
  - Limb discomfort [Unknown]
  - Pain in extremity [Recovered/Resolved]
  - Menstruation irregular [Unknown]
  - Metrorrhagia [Recovered/Resolved]
  - Amnesia [Unknown]
  - Paraesthesia [Unknown]

NARRATIVE: CASE EVENT DATE: 2015
